FAERS Safety Report 5767189-3 (Version None)
Quarter: 2008Q2

REPORT INFORMATION
  Report Type: 
  Country: None (occurrence: None)
  Receive Date: 20080612
  Receipt Date: 20080530
  Transmission Date: 20081010
  Serious: Yes (Disabling)
  Sender: FDA-Public Use
  Company Number: FR-GENENTECH-262373

PATIENT
  Sex: Female

DRUGS (11)
  1. HERCEPTIN [Suspect]
     Indication: DRUG USE FOR UNKNOWN INDICATION
     Dosage: 520 MG, QD
     Route: 042
     Dates: start: 20080218, end: 20080312
  2. FARMARUBICINE [Suspect]
     Indication: BREAST CANCER
     Dosage: 125 MG, QD
     Route: 042
     Dates: start: 20070725, end: 20071113
  3. TAXOTERE [Suspect]
     Indication: BREAST CANCER
     Dosage: 125 MG, QD
     Route: 042
     Dates: start: 20070725, end: 20071113
  4. TAMOXIFEN CITRATE [Suspect]
     Indication: DRUG USE FOR UNKNOWN INDICATION
     Dates: start: 20080215
  5. DEXCHLORPHENIRAMINE [Suspect]
     Indication: PREMEDICATION
     Route: 042
  6. CYCLOPHOSPHAMIDE [Suspect]
     Indication: BREAST CANCER
     Dosage: 850 MG, QD
     Route: 042
     Dates: start: 20070725, end: 20071113
  7. NEULASTA [Suspect]
     Indication: PROPHYLAXIS
     Route: 058
  8. ZOPHREN [Suspect]
     Indication: PREMEDICATION
  9. SUSPECTED DRUG [Suspect]
     Indication: PREMEDICATION
  10. PRIMPERAN TAB [Suspect]
     Indication: PREMEDICATION
  11. SOLU-MEDROL [Suspect]
     Indication: PREMEDICATION

REACTIONS (1)
  - HYPOTHYROIDISM [None]
